FAERS Safety Report 8999776 (Version 1)
Quarter: 2013Q1

REPORT INFORMATION
  Report Type: Report from Study
  Country: CN (occurrence: CN)
  Receive Date: 20130102
  Receipt Date: 20130102
  Transmission Date: 20140127
  Serious: Yes (Death, Other)
  Sender: FDA-Public Use
  Company Number: CN-ROCHE-1174142

PATIENT
  Sex: 0

DRUGS (3)
  1. CAPECITABINE [Suspect]
     Indication: METASTATIC GASTRIC CANCER
     Route: 065
  2. PACLITAXEL [Suspect]
     Indication: METASTATIC GASTRIC CANCER
     Route: 065
  3. CISPLATIN [Suspect]
     Indication: METASTATIC GASTRIC CANCER
     Dosage: FOR 6 CYCLES
     Route: 065

REACTIONS (4)
  - Death [Fatal]
  - Leukopenia [Unknown]
  - Gastrointestinal disorder [Unknown]
  - Anaemia [Unknown]
